FAERS Safety Report 4952101-7 (Version None)
Quarter: 2006Q1

REPORT INFORMATION
  Report Type: 
  Country: None (occurrence: None)
  Receive Date: 20060320
  Receipt Date: 20051114
  Transmission Date: 20060701
  Serious: Yes (Hospitalization, Other)
  Sender: FDA-Public Use
  Company Number: 2005BH003273

PATIENT
  Age: 67 Year
  Sex: Female

DRUGS (3)
  1. HEPARIN SODIUM [Suspect]
     Indication: DRUG USE FOR UNKNOWN INDICATION
     Dosage: 5000 + 200 UNITS; IVBOL - SEE IMAGE
     Route: 040
  2. ENOXAPARIN SODIUM [Suspect]
     Indication: DRUG USE FOR UNKNOWN INDICATION
     Dosage: 40 MG, UNK; SC
     Route: 058
  3. WARFARIN [Concomitant]

REACTIONS (13)
  - ANAPHYLACTIC REACTION [None]
  - CARDIAC ARREST [None]
  - DRUG HYPERSENSITIVITY [None]
  - INJECTION SITE ERYTHEMA [None]
  - INJECTION SITE NECROSIS [None]
  - INJECTION SITE REACTION [None]
  - MYOCARDIAL INFARCTION [None]
  - PAIN OF SKIN [None]
  - PLATELET COUNT DECREASED [None]
  - RENAL IMPAIRMENT [None]
  - RESPIRATORY ARREST [None]
  - SKIN LESION [None]
  - TRYPTASE INCREASED [None]
